FAERS Safety Report 8947805 (Version 1)
Quarter: 2012Q4

REPORT INFORMATION
  Report Type: Spontaneous
  Country: US (occurrence: None)
  Receive Date: 20121203
  Receipt Date: 20121203
  Transmission Date: 20130627
  Serious: Yes (Hospitalization)
  Sender: FDA-Public Use
  Company Number: None

PATIENT
  Age: 75 Year
  Sex: Male
  Weight: 109.1 kg

DRUGS (1)
  1. PACLITAXEL [Suspect]
     Dosage: ONCE IV
     Route: 042
     Dates: start: 20121108, end: 20121109

REACTIONS (2)
  - Chest pain [None]
  - Infusion related reaction [None]
